FAERS Safety Report 4900198-2 (Version None)
Quarter: 2006Q1

REPORT INFORMATION
  Report Type: 
  Country: None (occurrence: None)
  Receive Date: 20060203
  Receipt Date: 20050907
  Transmission Date: 20060701
  Serious: No
  Sender: FDA-Public Use
  Company Number: US-GLAXOSMITHKLINE-A0573324A

PATIENT
  Sex: Male

DRUGS (2)
  1. ARIXTRA [Suspect]
     Dosage: 2.5MG UNKNOWN
     Route: 058
     Dates: start: 20050901, end: 20050907
  2. NO CONCURRENT MEDICATION [Concomitant]

REACTIONS (1)
  - HAEMOGLOBIN DECREASED [None]
